FAERS Safety Report 7815282-3 (Version None)
Quarter: 2011Q4

REPORT INFORMATION
  Report Type: 
  Country: None (occurrence: None)
  Receive Date: 20111014
  Receipt Date: 20111003
  Transmission Date: 20120403
  Serious: Yes (Hospitalization)
  Sender: FDA-Public Use
  Company Number: FR-ACTELION-A-CH2011-51110

PATIENT
  Sex: Female
  Weight: 25 kg

DRUGS (4)
  1. ZAVESCA [Suspect]
     Dosage: UNK , UNK
     Route: 048
  2. ZAVESCA [Suspect]
     Indication: NIEMANN-PICK DISEASE
     Dosage: 200 MG, BID
     Route: 048
  3. DEPAKENE [Suspect]
  4. LAMICTAL [Suspect]

REACTIONS (4)
  - CONCOMITANT DISEASE AGGRAVATED [None]
  - EAR HAEMORRHAGE [None]
  - COAGULATION FACTOR DECREASED [None]
  - PLATELET COUNT DECREASED [None]
